FAERS Safety Report 4755270-7 (Version None)
Quarter: 2005Q3

REPORT INFORMATION
  Report Type: 
  Country: None (occurrence: None)
  Receive Date: 20050829
  Receipt Date: 20050414
  Transmission Date: 20060218
  Serious: Yes (Death, Hospitalization, Other)
  Sender: FDA-Public Use
  Company Number: US-MERCK-0504USA03086

PATIENT
  Age: 73 Year
  Sex: Female
  Weight: 58 kg

DRUGS (7)
  1. VIOXX [Suspect]
     Indication: ARTHRITIS
     Route: 048
     Dates: start: 20030210, end: 20040519
  2. VASOTEC RPD [Concomitant]
     Indication: HYPERTENSION
     Route: 048
     Dates: start: 20000101, end: 20040501
  3. TENORMIN [Concomitant]
     Indication: CARDIAC DISORDER
     Route: 065
  4. ASPIRIN [Concomitant]
     Indication: PROPHYLAXIS
     Route: 048
  5. LIPITOR [Concomitant]
     Indication: BLOOD CHOLESTEROL INCREASED
     Route: 065
     Dates: start: 20000101, end: 20040501
  6. PAXIL [Concomitant]
     Indication: DEPRESSION
     Route: 065
  7. SYNTHROID [Concomitant]
     Indication: HYPOTHYROIDISM
     Route: 065

REACTIONS (11)
  - ANEURYSM [None]
  - ARRHYTHMIA [None]
  - ATHEROSCLEROSIS [None]
  - CEREBROVASCULAR ACCIDENT [None]
  - CYANOSIS [None]
  - DEATH [None]
  - FALL [None]
  - HEART RATE IRREGULAR [None]
  - LOSS OF CONSCIOUSNESS [None]
  - MYOCARDIAL INFARCTION [None]
  - TONSILLAR DISORDER [None]
